FAERS Safety Report 8770811 (Version 1)
Quarter: 2012Q4

REPORT INFORMATION
  Report Type: 
  Country: US (occurrence: US)
  Receive Date: 20120906
  Receipt Date: 20120906
  Transmission Date: 20130627
  Serious: No
  Sender: FDA-Public Use
  Company Number: US-009507513-1207USA002091

PATIENT

DRUGS (1)
  1. NEXPLANON [Suspect]
     Indication: CONTRACEPTION
     Dosage: 3 year implant
     Dates: start: 20120706, end: 20120706

REACTIONS (4)
  - No adverse event [Unknown]
  - Complication of device insertion [Unknown]
  - Device difficult to use [Unknown]
  - Medical device complication [Unknown]
